FAERS Safety Report 4398381-0 (Version None)
Quarter: 2004Q3

REPORT INFORMATION
  Report Type: 
  Country: None (occurrence: None)
  Receive Date: 20040713
  Receipt Date: 20040629
  Transmission Date: 20050211
  Serious: Yes (Hospitalization)
  Sender: FDA-Public Use
  Company Number: 20042109989NO

PATIENT
  Sex: Female

DRUGS (2)
  1. CELEBREX [Suspect]
     Dosage: 200 MG, BID, ORAL
     Route: 048
  2. CITALOPRAM HYDROBROMIDE [Concomitant]

REACTIONS (2)
  - MUSCLE CRAMP [None]
  - SYNCOPE [None]
